FAERS Safety Report 5104477-8 (Version None)
Quarter: 2006Q3

REPORT INFORMATION
  Report Type: 
  Country: None (occurrence: None)
  Receive Date: 20060731
  Receipt Date: 20050818
  Transmission Date: 20061208
  Serious: Yes (Other)
  Sender: FDA-Public Use
  Company Number: US-JNJFOC-20050505752

PATIENT
  Age: 52 Year
  Sex: Male

DRUGS (2)
  1. RISPERDAL CONSTA [Suspect]
     Indication: DRUG USE FOR UNKNOWN INDICATION
     Dosage: 25 MG
  2. DEPAKOTE [Concomitant]

REACTIONS (1)
  - WHITE BLOOD CELL COUNT DECREASED [None]
